FAERS Safety Report 4479587-9 (Version None)
Quarter: 2004Q4

REPORT INFORMATION
  Report Type: 
  Country: None (occurrence: None)
  Receive Date: 20041015
  Receipt Date: 20040929
  Transmission Date: 20050328
  Serious: Yes (Death)
  Sender: FDA-Public Use
  Company Number: 2004IC000870

PATIENT
  Age: 70 Year
  Sex: Male

DRUGS (2)
  1. FLUOROURACIL [Suspect]
     Indication: OESOPHAGEAL CARCINOMA
     Dosage: INTRAVENOUS
     Route: 042
  2. CISPLATIN [Concomitant]

REACTIONS (1)
  - INTERSTITIAL LUNG DISEASE [None]
